FAERS Safety Report 4308893-3 (Version None)
Quarter: 2004Q1

REPORT INFORMATION
  Report Type: 
  Country: None (occurrence: None)
  Receive Date: 20040227
  Receipt Date: 20040212
  Transmission Date: 20041129
  Serious: Yes (Other)
  Sender: FDA-Public Use
  Company Number: M04-341-040

PATIENT
  Age: 67 Year
  Sex: Male
  Weight: 95 kg

DRUGS (9)
  1. VELCADE [Suspect]
     Indication: MULTIPLE MYELOMA
     Dosage: 3.0 MG (1.3 MG/M2): INTRAVENOUS BOLUS
     Route: 040
     Dates: start: 20030801, end: 20040123
  2. ACYCLOVIR [Concomitant]
  3. AMBIEN [Concomitant]
  4. BACTRIM [Concomitant]
  5. DEXAMETHASONE [Concomitant]
  6. IRON [Concomitant]
  7. MULTI-VITAMINS [Concomitant]
  8. PERI-COLACE [Concomitant]
  9. RANITIDINE [Concomitant]

REACTIONS (3)
  - BLOOD PRESSURE INCREASED [None]
  - FALL [None]
  - ORTHOSTATIC HYPOTENSION [None]
